FAERS Safety Report 7550467-5 (Version None)
Quarter: 2011Q2

REPORT INFORMATION
  Report Type: 
  Country: None (occurrence: None)
  Receive Date: 20110615
  Receipt Date: 20110614
  Transmission Date: 20111010
  Serious: Yes (Hospitalization, Other)
  Sender: FDA-Public Use
  Company Number: ES-MERCK-1106ESP00001

PATIENT
  Age: 71 Year
  Sex: Male

DRUGS (6)
  1. HYDROCHLOROTHIAZIDE [Concomitant]
     Indication: HYPERTENSION
     Route: 065
  2. INSULIN [Concomitant]
     Indication: DIABETES MELLITUS
     Route: 065
     Dates: start: 20110501, end: 20110529
  3. INVANZ [Suspect]
     Indication: ABDOMINAL ABSCESS
     Route: 042
     Dates: start: 20110506, end: 20110523
  4. TRAMADOL HYDROCHLORIDE [Concomitant]
     Indication: ANALGESIC THERAPY
     Route: 065
     Dates: start: 20110501, end: 20110502
  5. LOSARTAN POTASSIUM [Concomitant]
     Indication: HYPERTENSION
     Route: 048
  6. DIPYRONE [Concomitant]
     Indication: ANALGESIC THERAPY
     Route: 048
     Dates: start: 20110503, end: 20110529

REACTIONS (3)
  - HALLUCINATION [None]
  - PSYCHOMOTOR HYPERACTIVITY [None]
  - DISORIENTATION [None]
